FAERS Safety Report 15872555 (Version 1)
Quarter: 2019Q1

REPORT INFORMATION
  Report Type: Other
  Country: US (occurrence: US)
  Receive Date: 20190126
  Receipt Date: 20190126
  Transmission Date: 20190417
  Serious: No
  Sender: FDA-Public Use
  Company Number: US-ACORDA-ACO_148293_2018

PATIENT
  Age: 58 Year
  Sex: Female

DRUGS (4)
  1. AMPYRA [Suspect]
     Active Substance: DALFAMPRIDINE
     Indication: MULTIPLE SCLEROSIS
     Dosage: 10 MG, QD (QAM)
     Route: 065
     Dates: start: 20180321
  2. RHIGM22 (MONOCLONAL ANTIBODIES) [Suspect]
     Active Substance: INVESTIGATIONAL PRODUCT
     Indication: CLINICAL TRIAL PARTICIPANT
     Dosage: UNK
     Route: 065
     Dates: start: 20140407
  3. OCREVUS [Concomitant]
     Active Substance: OCRELIZUMAB
     Indication: PRODUCT USED FOR UNKNOWN INDICATION
     Dosage: UNK
     Route: 065
     Dates: start: 201712
  4. AMPYRA [Suspect]
     Active Substance: DALFAMPRIDINE
     Indication: GAIT DISTURBANCE
     Dosage: 10 MG, BID
     Route: 048
     Dates: start: 201004

REACTIONS (5)
  - Hypokinesia [Recovering/Resolving]
  - Neuralgia [Recovered/Resolved]
  - Inappropriate schedule of product administration [Not Recovered/Not Resolved]
  - Limb discomfort [Unknown]
  - Feeling jittery [Recovered/Resolved]

NARRATIVE: CASE EVENT DATE: 201405
